FAERS Safety Report 23782215 (Version 1)
Quarter: 2024Q2

REPORT INFORMATION
  Report Type: Spontaneous
  Country: CZ (occurrence: CZ)
  Receive Date: 20240425
  Receipt Date: 20240425
  Transmission Date: 20240716
  Serious: Yes (Death)
  Sender: FDA-Public Use
  Company Number: CZ-EMA-DD-20240402-7482689-094435

PATIENT
  Age: 21 Year
  Sex: Female

DRUGS (2)
  1. DOCETAXEL [Suspect]
     Active Substance: DOCETAXEL\DOCETAXEL ANHYDROUS
     Indication: Disease progression
     Dosage: 80 MG/M2, QCY
     Dates: start: 201701
  2. DOCETAXEL [Suspect]
     Active Substance: DOCETAXEL\DOCETAXEL ANHYDROUS
     Indication: Non-small cell lung cancer metastatic
     Dosage: 80 MG/M2, UNK SECOND LINE CHEMOTHERAPY
     Dates: start: 201701

REACTIONS (2)
  - Infection [Fatal]
  - Neoplasm progression [Fatal]

NARRATIVE: CASE EVENT DATE: 20170101
